FAERS Safety Report 8977624 (Version 2)
Quarter: 2013Q3

REPORT INFORMATION
  Report Type: Spontaneous
  Country: US (occurrence: US)
  Receive Date: 20121220
  Receipt Date: 20130916
  Transmission Date: 20140515
  Serious: Yes (Hospitalization)
  Sender: FDA-Public Use
  Company Number: US-GLAXOSMITHKLINE-A1006092A

PATIENT
  Age: 55 Year
  Sex: Male

DRUGS (2)
  1. VENTOLIN HFA [Suspect]
     Indication: ASTHMA
     Route: 055
     Dates: start: 20110804
  2. FLOVENT [Suspect]
     Indication: ASTHMA
     Dosage: 110MCG UNKNOWN
     Route: 055
     Dates: start: 20130318

REACTIONS (2)
  - Pneumonia [Unknown]
  - Drug administration error [Unknown]
